FAERS Safety Report 5525191-0 (Version None)
Quarter: 2007Q4

REPORT INFORMATION
  Report Type: 
  Country: None (occurrence: None)
  Receive Date: 20071119
  Receipt Date: 20071108
  Transmission Date: 20080405
  Serious: Yes (Other)
  Sender: FDA-Public Use
  Company Number: 2007SP021400

PATIENT
  Age: 70 Year
  Sex: Female

DRUGS (5)
  1. PEGINTERFERON ALFA-2B (S-P)  (PEGINTERFERON ALFA-2B) [Suspect]
     Indication: CARCINOID TUMOUR
     Dosage: 80 MCG; QW
     Dates: start: 20040101
  2. PEGINTERFERON ALFA-2B (S-P)  (PEGINTERFERON ALFA-2B) [Suspect]
     Indication: CARCINOID TUMOUR
     Dosage: 80 MCG; QW
     Dates: start: 20071010
  3. PEGINTERFERON ALFA-2B (S-P)  (PEGINTERFERON ALFA-2B) [Suspect]
     Indication: CARCINOID TUMOUR
     Dosage: 80 MCG; QW
     Dates: start: 20071017
  4. PEGINTERFERON ALFA-2B (S-P)  (PEGINTERFERON ALFA-2B) [Suspect]
     Indication: CARCINOID TUMOUR
     Dosage: 80 MCG; QW
     Dates: start: 20071024
  5. COAPROVEL [Concomitant]

REACTIONS (3)
  - COLD SWEAT [None]
  - PYREXIA [None]
  - TREMOR [None]
